FAERS Safety Report 12260244 (Version 1)
Quarter: 2016Q2

REPORT INFORMATION
  Report Type: Spontaneous
  Country: US (occurrence: US)
  Receive Date: 20160412
  Receipt Date: 20160412
  Transmission Date: 20160815
  Serious: No
  Sender: FDA-Public Use
  Company Number: US-SA-2015SA202560

PATIENT
  Sex: Female

DRUGS (1)
  1. ALLEGRA ALLERGY [Suspect]
     Active Substance: FEXOFENADINE HYDROCHLORIDE
     Indication: MULTIPLE ALLERGIES
     Dosage: DOSING INFORMATION CAPTURED AS PER NARRATIVE LOG
     Route: 048
     Dates: start: 20151122, end: 20151124

REACTIONS (3)
  - Off label use [Unknown]
  - Condition aggravated [Unknown]
  - Drug ineffective [Unknown]
